FAERS Safety Report 10099676 (Version 3)
Quarter: 2014Q3

REPORT INFORMATION
  Report Type: Spontaneous
  Country: CA (occurrence: CA)
  Receive Date: 20140423
  Receipt Date: 20140707
  Transmission Date: 20150326
  Serious: Yes (Other)
  Sender: FDA-Public Use
  Company Number: CA-GLAXOSMITHKLINE-A1041596A

PATIENT
  Age: 38 Year
  Sex: Female
  Weight: 100.7 kg

DRUGS (5)
  1. CELLCEPT [Concomitant]
     Active Substance: MYCOPHENOLATE MOFETIL\MYCOPHENOLATE MOFETIL HYDROCHLORIDE
     Dosage: 2000MG FOUR TIMES PER DAY
     Route: 048
  2. PREDNISONE. [Concomitant]
     Active Substance: PREDNISONE
     Dosage: 7.5MG PER DAY
  3. PLAQUENIL [Concomitant]
     Active Substance: HYDROXYCHLOROQUINE SULFATE
     Dosage: 200MG PER DAY
  4. BENLYSTA [Suspect]
     Active Substance: BELIMUMAB
     Indication: SYSTEMIC LUPUS ERYTHEMATOSUS
     Dosage: 900MG SEE DOSAGE TEXT
     Route: 042
     Dates: start: 20130822
  5. ACETAMINOPHEN. [Concomitant]
     Active Substance: ACETAMINOPHEN

REACTIONS (15)
  - Abdominal pain [Not Recovered/Not Resolved]
  - Underdose [Unknown]
  - Vomiting [Not Recovered/Not Resolved]
  - Bronchitis viral [Unknown]
  - Malaise [Unknown]
  - Immune system disorder [Unknown]
  - Surgery [Unknown]
  - Bronchitis [Recovered/Resolved]
  - Diarrhoea [Not Recovered/Not Resolved]
  - Streptococcal infection [Unknown]
  - Gastrointestinal disorder [Unknown]
  - Nasopharyngitis [Unknown]
  - Cough [Unknown]
  - Pneumonia [Unknown]
  - Pyrexia [Unknown]

NARRATIVE: CASE EVENT DATE: 201404
